FAERS Safety Report 8362296-3 (Version None)
Quarter: 2012Q2

REPORT INFORMATION
  Report Type: 
  Country: None (occurrence: None)
  Receive Date: 20120515
  Receipt Date: 20120503
  Transmission Date: 20120825
  Serious: Yes (Hospitalization)
  Sender: FDA-Public Use
  Company Number: US-ELI_LILLY_AND_COMPANY-US201203009338

PATIENT
  Age: 65 Year
  Sex: Female

DRUGS (2)
  1. FORTEO [Suspect]
     Indication: OSTEOPOROSIS
     Dosage: UNK, UNKNOWN
  2. FORTEO [Suspect]
     Dosage: UNK, QOD
     Dates: start: 20120401

REACTIONS (5)
  - PALPITATIONS [None]
  - HIP SURGERY [None]
  - MALAISE [None]
  - DYSPEPSIA [None]
  - DRUG PRESCRIBING ERROR [None]
